FAERS Safety Report 9687640 (Version 1)
Quarter: 2013Q4

REPORT INFORMATION
  Report Type: Spontaneous
  Country: HU (occurrence: None)
  Receive Date: 20131112
  Receipt Date: 20131112
  Transmission Date: 20140711
  Serious: Yes (Other)
  Sender: FDA-Public Use
  Company Number: AUR-APL-2013-09434

PATIENT
  Age: 7 Decade
  Sex: Male

DRUGS (2)
  1. MIRTAZAPINE (MIRTAZAPINE) [Suspect]
     Indication: DEPRESSION
  2. VENLAFAXINE HYDROCHLORIDE (VENLAFAXINE HYDROCHLORIDE) [Suspect]
     Indication: DEPRESSION

REACTIONS (8)
  - Hyponatraemia [None]
  - Depression [None]
  - Social avoidant behaviour [None]
  - Decreased activity [None]
  - Decreased interest [None]
  - Clostridium difficile colitis [None]
  - Loss of consciousness [None]
  - General physical health deterioration [None]
